FAERS Safety Report 10195398 (Version 2)
Quarter: 2014Q2

REPORT INFORMATION
  Report Type: Report from Study
  Country: CA (occurrence: CA)
  Receive Date: 20140526
  Receipt Date: 20140526
  Transmission Date: 20141212
  Serious: Yes (Death)
  Sender: FDA-Public Use
  Company Number: PHHY2012CA050454

PATIENT
  Age: 68 Year
  Sex: Female

DRUGS (1)
  1. ZOMETA [Suspect]
     Indication: BREAST CANCER METASTATIC
     Dosage: 4 MG, EVERY 4 WEEKS
     Route: 042
     Dates: start: 20120323, end: 20140301

REACTIONS (7)
  - Death [Fatal]
  - Weight decreased [Unknown]
  - Vascular fragility [Unknown]
  - Poor venous access [Unknown]
  - Blood creatinine increased [Unknown]
  - Malaise [Unknown]
  - Drug ineffective [Unknown]
